FAERS Safety Report 4493094-9 (Version None)
Quarter: 2004Q4

REPORT INFORMATION
  Report Type: 
  Country: None (occurrence: None)
  Receive Date: 20041104
  Receipt Date: 20041026
  Transmission Date: 20050328
  Serious: Yes (Hospitalization)
  Sender: FDA-Public Use
  Company Number: US-GLAXOSMITHKLINE-A0531616A

PATIENT
  Age: 73 Year
  Sex: Female
  Weight: 63.6 kg

DRUGS (11)
  1. TOPOTECAN [Suspect]
     Indication: SMALL CELL LUNG CANCER STAGE UNSPECIFIED
     Dosage: 7MGM2 WEEKLY
     Route: 042
     Dates: start: 20040623, end: 20040623
  2. MYCELEX TROCHES [Concomitant]
     Indication: CANDIDIASIS
     Dosage: 10MG THREE TIMES PER DAY
     Dates: start: 20040512
  3. SENOKOT [Concomitant]
     Indication: CONSTIPATION
     Dates: start: 20040518
  4. RESTORIL [Concomitant]
     Indication: SLEEP DISORDER
     Dosage: 15MG AT NIGHT
     Dates: start: 20040518
  5. NEXIUM [Concomitant]
     Indication: GASTROOESOPHAGEAL REFLUX DISEASE
     Dosage: 40MG PER DAY
     Dates: start: 20040518
  6. TOPROL-XL [Concomitant]
     Indication: CARDIAC DISORDER
     Dosage: 25MG PER DAY
     Dates: start: 19990101
  7. HYDROCHLOROTHIAZIDE [Concomitant]
     Indication: OEDEMA
     Dosage: 25MG PER DAY
     Dates: start: 20040630
  8. PROCHLORPERAZINE [Concomitant]
     Indication: NAUSEA
     Dosage: 10MG AS REQUIRED
     Dates: start: 20040618
  9. DECADRON [Concomitant]
     Dosage: 4MG PER DAY
     Dates: start: 20040702
  10. GLUCAGON [Concomitant]
     Indication: BLOOD GLUCOSE INCREASED
     Dosage: 1MG AS REQUIRED
     Dates: start: 20040707, end: 20040713
  11. INSULIN [Concomitant]
     Indication: BLOOD GLUCOSE INCREASED

REACTIONS (15)
  - ANAEMIA [None]
  - BACK INJURY [None]
  - BACTERIURIA [None]
  - BLOOD URINE PRESENT [None]
  - DEHYDRATION [None]
  - DIZZINESS [None]
  - FALL [None]
  - FATIGUE [None]
  - FEBRILE NEUTROPENIA [None]
  - HYPOKALAEMIA [None]
  - HYPOTENSION [None]
  - OEDEMA PERIPHERAL [None]
  - PLATELET COUNT DECREASED [None]
  - PROTEIN URINE PRESENT [None]
  - WHITE BLOOD CELL COUNT DECREASED [None]
